FAERS Safety Report 5167004-5 (Version None)
Quarter: 2006Q4

REPORT INFORMATION
  Report Type: 
  Country: None (occurrence: None)
  Receive Date: 20061207
  Receipt Date: 20061127
  Transmission Date: 20070319
  Serious: Yes (Hospitalization)
  Sender: FDA-Public Use
  Company Number: JP-SANOFI-SYNTHELABO-A01200610213

PATIENT
  Age: 80 Year
  Sex: Female

DRUGS (1)
  1. MILRILA [Suspect]
     Indication: CARDIAC FAILURE ACUTE
     Route: 041

REACTIONS (1)
  - RENAL IMPAIRMENT [None]
